FAERS Safety Report 20559214 (Version 1)
Quarter: 2022Q1

REPORT INFORMATION
  Report Type: Spontaneous
  Country: US (occurrence: None)
  Receive Date: 20220304
  Receipt Date: 20220304
  Transmission Date: 20220423
  Serious: No
  Sender: FDA-Public Use
  Company Number: None

PATIENT
  Sex: Male

DRUGS (1)
  1. STELARA [Suspect]
     Active Substance: USTEKINUMAB
     Dosage: OTHER FREQUENCY : EVERY8WEEKS;?
     Route: 042
     Dates: start: 2020

REACTIONS (4)
  - Swelling face [None]
  - Lip swelling [None]
  - Anaphylactic reaction [None]
  - Hypersensitivity [None]
